FAERS Safety Report 7453996-8 (Version None)
Quarter: 2011Q2

REPORT INFORMATION
  Report Type: 
  Country: None (occurrence: None)
  Receive Date: 20110502
  Receipt Date: 20110427
  Transmission Date: 20111010
  Serious: Yes (Death, Life-Threatening, Hospitalization, Other)
  Sender: FDA-Public Use
  Company Number: FR-ROCHE-687694

PATIENT
  Sex: Female
  Weight: 55 kg

DRUGS (6)
  1. APRANAX [Suspect]
     Dosage: 1 TABLET IN THE MORNING AND 1 TABLET IN THE EVENING
     Route: 048
     Dates: start: 20090312, end: 20090415
  2. CORTANCYL [Concomitant]
     Route: 048
     Dates: start: 20070701
  3. PRETERAX [Concomitant]
     Dates: start: 20060101
  4. HEPARIN CALCIUM [Concomitant]
  5. ARAVA [Suspect]
     Route: 048
     Dates: start: 20090312, end: 20090415
  6. CORTANCYL [Concomitant]
     Dosage: START DATE REPORTED AS 2006
     Route: 048
     Dates: end: 20060301

REACTIONS (7)
  - HISTIOCYTOSIS HAEMATOPHAGIC [None]
  - GASTROINTESTINAL HAEMORRHAGE [None]
  - GASTRITIS [None]
  - ENTEROCOLITIS INFECTIOUS [None]
  - OESOPHAGITIS [None]
  - DRUG RASH WITH EOSINOPHILIA AND SYSTEMIC SYMPTOMS [None]
  - VISUAL ACUITY REDUCED [None]
